FAERS Safety Report 5041861-5 (Version None)
Quarter: 2006Q2

REPORT INFORMATION
  Report Type: 
  Country: None (occurrence: None)
  Receive Date: 20060630
  Receipt Date: 20060616
  Transmission Date: 20061013
  Serious: Yes (Death)
  Sender: FDA-Public Use
  Company Number: 2006S1005600

PATIENT
  Age: 82 Year
  Sex: Female

DRUGS (8)
  1. CLOZAPINE [Suspect]
     Indication: PSYCHOTIC DISORDER
     Dosage: 12.5 MG; QD; ORAL
     Route: 048
     Dates: start: 20050825, end: 20060101
  2. LEVOSALBUTAMOL [Concomitant]
  3. AMLODIPINE [Concomitant]
  4. RAMIPRIL [Concomitant]
  5. DICLOFENAC SODIUM [Concomitant]
  6. FAMCICLOVIR [Concomitant]
  7. CARBIDOPA AND LEVODOPA [Concomitant]
  8. ENTACAPONE [Concomitant]

REACTIONS (1)
  - SILENT MYOCARDIAL INFARCTION [None]
